FAERS Safety Report 5886613-9 (Version None)
Quarter: 2008Q3

REPORT INFORMATION
  Report Type: 
  Country: None (occurrence: None)
  Receive Date: 20080917
  Receipt Date: 20080905
  Transmission Date: 20090109
  Serious: Yes (Other)
  Sender: FDA-Public Use
  Company Number: PHBS2006ES17729

PATIENT
  Age: 60 Year
  Sex: Female

DRUGS (7)
  1. ZOLEDRONIC ACID [Suspect]
     Indication: METASTASES TO BONE
     Dosage: 4 MG GIVEN FOR 15 MIN EVERY 3 OR 4 WEEKS
     Route: 042
     Dates: start: 20021201
  2. LETROZOLE [Concomitant]
     Indication: METASTASES TO BONE
     Dosage: UNK
     Dates: start: 20021201
  3. PACLITAXEL [Concomitant]
     Indication: METASTASES TO LIVER
     Dosage: UNK
     Dates: start: 20040801
  4. GEMCITABINE [Concomitant]
     Indication: METASTASES TO LIVER
     Dosage: UNK
     Dates: start: 20040801
  5. FULVESTRANT [Concomitant]
     Dosage: UNK
     Route: 065
     Dates: start: 20050801
  6. CALCIUM [Concomitant]
     Route: 048
  7. VITAMIN D [Concomitant]
     Route: 048

REACTIONS (6)
  - BLOOD CREATININE INCREASED [None]
  - BONE DISORDER [None]
  - INFECTION [None]
  - ORAL PAIN [None]
  - OSTEONECROSIS [None]
  - TOOTH EXTRACTION [None]
